FAERS Safety Report 13377105 (Version 3)
Quarter: 2018Q2

REPORT INFORMATION
  Report Type: Spontaneous
  Country: CA (occurrence: CA)
  Receive Date: 20170328
  Receipt Date: 20180611
  Transmission Date: 20180711
  Serious: Yes (Hospitalization)
  Sender: FDA-Public Use
  Company Number: CA-EMD SERONO-8149856

PATIENT
  Sex: Female

DRUGS (1)
  1. REBIF [Suspect]
     Active Substance: INTERFERON BETA-1A
     Indication: MULTIPLE SCLEROSIS
     Route: 058
     Dates: start: 20070725, end: 201703

REACTIONS (4)
  - White blood cell count increased [Recovering/Resolving]
  - Drug ineffective [Unknown]
  - Substance-induced psychotic disorder [Unknown]
  - Multiple sclerosis relapse [Recovering/Resolving]
